FAERS Safety Report 12886760 (Version 3)
Quarter: 2016Q4

REPORT INFORMATION
  Report Type: Spontaneous
  Country: CA (occurrence: CA)
  Receive Date: 20161026
  Receipt Date: 20161221
  Transmission Date: 20170207
  Serious: Yes (Other)
  Sender: FDA-Public Use
  Company Number: CA-CELGENEUS-CAN-2016066103

PATIENT
  Age: 73 Year
  Sex: Male
  Weight: 86 kg

DRUGS (5)
  1. GEM [Concomitant]
     Indication: CHEMOTHERAPY
     Route: 065
  2. ABRAXANE [Suspect]
     Active Substance: PACLITAXEL
     Indication: PANCREATIC CARCINOMA METASTATIC
     Dosage: 125MG
     Route: 041
     Dates: start: 20160601
  3. ASA [Concomitant]
     Active Substance: ASPIRIN
     Indication: PRODUCT USED FOR UNKNOWN INDICATION
     Route: 065
  4. FOLFIRINOX [Concomitant]
     Active Substance: FLUOROURACIL\IRINOTECAN\LEUCOVORIN\OXALIPLATIN
     Indication: PRODUCT USED FOR UNKNOWN INDICATION
     Route: 065
     Dates: end: 201604
  5. ABRAXANE [Suspect]
     Active Substance: PACLITAXEL
     Dosage: 182
     Route: 041
     Dates: start: 20160601

REACTIONS (3)
  - Haemorrhage [Unknown]
  - Platelet count decreased [Unknown]
  - Blood disorder [Unknown]

NARRATIVE: CASE EVENT DATE: 201611
